FAERS Safety Report 8165062-7 (Version None)
Quarter: 2012Q1

REPORT INFORMATION
  Report Type: 
  Country: None (occurrence: None)
  Receive Date: 20120227
  Receipt Date: 20120216
  Transmission Date: 20120608
  Serious: No
  Sender: FDA-Public Use
  Company Number: US-BIOGENIDEC-2012BI006449

PATIENT
  Age: 49 Year
  Sex: Female

DRUGS (1)
  1. AVONEX [Suspect]
     Indication: MULTIPLE SCLEROSIS
     Route: 030
     Dates: start: 20001016

REACTIONS (5)
  - DYSSTASIA [None]
  - FALL [None]
  - BONE PAIN [None]
  - BURNING SENSATION [None]
  - PAIN IN EXTREMITY [None]
